FAERS Safety Report 24828958 (Version 1)
Quarter: 2025Q1

REPORT INFORMATION
  Report Type: Report from Study
  Country: IN (occurrence: IN)
  Receive Date: 20250110
  Receipt Date: 20250110
  Transmission Date: 20250408
  Serious: Yes (Other)
  Sender: ROCHE
  Company Number: IN-ROCHE-10000049029

PATIENT
  Age: 61 Year
  Sex: Female

DRUGS (1)
  1. KADCYLA [Suspect]
     Active Substance: ADO-TRASTUZUMAB EMTANSINE
     Indication: Breast cancer metastatic
     Route: 042
     Dates: start: 20240528

REACTIONS (6)
  - Off label use [Unknown]
  - Erythema [Not Recovered/Not Resolved]
  - Swelling [Unknown]
  - Pruritus [Unknown]
  - Neoplasm malignant [Unknown]
  - Ill-defined disorder [Unknown]
